FAERS Safety Report 6713490-6 (Version None)
Quarter: 2010Q2

REPORT INFORMATION
  Report Type: 
  Country: None (occurrence: None)
  Receive Date: 20100504
  Receipt Date: 20100420
  Transmission Date: 20101027
  Serious: Yes (Death)
  Sender: FDA-Public Use
  Company Number: IDA-00352

PATIENT
  Age: 17 Year
  Sex: Male

DRUGS (1)
  1. PROPRANOLOL [Suspect]
     Dosage: 120 MG DAILY ORAL / 180 MG DAILY ORAL
     Route: 048

REACTIONS (2)
  - SUDDEN DEATH [None]
  - VENTRICULAR EXTRASYSTOLES [None]
